FAERS Safety Report 24592460 (Version 1)
Quarter: 2024Q4

REPORT INFORMATION
  Report Type: Spontaneous
  Country: GB (occurrence: GB)
  Receive Date: 20241108
  Receipt Date: 20241108
  Transmission Date: 20250115
  Serious: Yes (Other)
  Sender: AUROBINDO
  Company Number: GB-MHRA-MED-202410261342577300-VDBHF

PATIENT
  Age: 44 Year
  Sex: Female

DRUGS (1)
  1. RAMIPRIL [Suspect]
     Active Substance: RAMIPRIL
     Indication: IgA nephropathy
     Dosage: 1.25 MILLIGRAM, ONCE A DAY (1.25MG ONCE A DAY IN THE MORNING)
     Route: 065
     Dates: start: 20241010, end: 20241026

REACTIONS (1)
  - Sputum purulent [Not Recovered/Not Resolved]

NARRATIVE: CASE EVENT DATE: 20241010
